FAERS Safety Report 12356078 (Version 1)
Quarter: 2016Q2

REPORT INFORMATION
  Report Type: Spontaneous
  Country: US (occurrence: US)
  Receive Date: 20160511
  Receipt Date: 20160511
  Transmission Date: 20160815
  Serious: No
  Sender: FDA-Public Use
  Company Number: US-ACTAVIS-2016-04888

PATIENT
  Sex: Female

DRUGS (1)
  1. MINOXIDIL (AMALLC) [Suspect]
     Active Substance: MINOXIDIL
     Indication: HAIR GROWTH ABNORMAL
     Dosage: UNK, BID
     Route: 065
     Dates: start: 20150930, end: 201511

REACTIONS (3)
  - Drug ineffective [Unknown]
  - Alopecia [Recovering/Resolving]
  - Condition aggravated [Recovering/Resolving]
